FAERS Safety Report 5720757-7 (Version None)
Quarter: 2008Q2

REPORT INFORMATION
  Report Type: 
  Country: None (occurrence: None)
  Receive Date: 20080429
  Receipt Date: 20080418
  Transmission Date: 20081010
  Serious: Yes (Hospitalization, Other)
  Sender: FDA-Public Use
  Company Number: FR-BRISTOL-MYERS SQUIBB COMPANY-14165922

PATIENT
  Age: 82 Year
  Sex: Female

DRUGS (7)
  1. FOZITEC [Suspect]
     Route: 048
  2. ALLOPURINOL [Suspect]
     Route: 048
  3. CARBOCISTEINE [Suspect]
     Dates: start: 20080305, end: 20080307
  4. ASPIRIN [Suspect]
     Dosage: 160 MG,POWDER FOR ORAL SOLUTION
     Route: 048
  5. ADANCOR [Concomitant]
  6. FUROSEMIDE [Concomitant]
  7. EUPRESSYL [Concomitant]

REACTIONS (3)
  - PRURITUS [None]
  - PURPURA [None]
  - RASH MACULO-PAPULAR [None]
